FAERS Safety Report 19173002 (Version 1)
Quarter: 2021Q2

REPORT INFORMATION
  Report Type: Spontaneous
  Country: GB (occurrence: GB)
  Receive Date: 20210423
  Receipt Date: 20210423
  Transmission Date: 20210717
  Serious: Yes (Other)
  Sender: FDA-Public Use
  Company Number: GB-MYLANLABS-2021M1022487

PATIENT
  Age: 77 Year
  Sex: Female
  Weight: 53 kg

DRUGS (8)
  1. RAMIPRIL. [Suspect]
     Active Substance: RAMIPRIL
     Indication: PRODUCT USED FOR UNKNOWN INDICATION
     Dosage: 1.25 MILLIGRAM, QD
     Route: 048
     Dates: start: 20210401
  2. AMLODIPINE [Concomitant]
     Active Substance: AMLODIPINE BESYLATE
     Dosage: 1 DOSAGE FORM, QD
     Dates: start: 20200827
  3. LORATADINE. [Concomitant]
     Active Substance: LORATADINE
     Dosage: 1 DOSAGE FORM, QD
     Dates: start: 20200827, end: 20210308
  4. BISOPROLOL [Concomitant]
     Active Substance: BISOPROLOL
     Dosage: 1 DOSAGE FORM, QD
     Dates: start: 20200827
  5. BENDROFLUMETHIAZIDE [Concomitant]
     Active Substance: BENDROFLUMETHIAZIDE
     Dosage: 1 DOSAGE FORM, QD (IN THE MORNING)
     Dates: start: 20200827
  6. PARACETAMOL [Concomitant]
     Active Substance: ACETAMINOPHEN
     Dosage: 1?2 TO BE TAKEN UPTO THREE TIMES DAILY
     Dates: start: 20200827
  7. LOSARTAN. [Concomitant]
     Active Substance: LOSARTAN
     Dosage: 1 DOSAGE FORM, QD
     Dates: start: 20210409
  8. ATORVASTATIN [Concomitant]
     Active Substance: ATORVASTATIN
     Dosage: 1 DOSAGE FORM, QD
     Route: 048
     Dates: start: 20200827

REACTIONS (2)
  - Cough [Recovering/Resolving]
  - Muscle spasms [Unknown]
